FAERS Safety Report 8169799-5 (Version None)
Quarter: 2012Q1

REPORT INFORMATION
  Report Type: 
  Country: None (occurrence: None)
  Receive Date: 20120228
  Receipt Date: 20120216
  Transmission Date: 20120608
  Serious: Yes (Hospitalization, Other)
  Sender: FDA-Public Use
  Company Number: FR-BRISTOL-MYERS SQUIBB COMPANY-16407686

PATIENT
  Age: 94 Year
  Sex: Male

DRUGS (13)
  1. NORMACOL [Concomitant]
  2. NICARDIPINE HCL [Interacting]
     Route: 048
  3. STABLON [Interacting]
     Route: 048
  4. IMOVANE [Interacting]
     Route: 048
  5. FOLIC ACID [Concomitant]
     Route: 048
  6. POLYETHYLENE GLYCOL [Concomitant]
     Dosage: 1 OR 2/DAY
     Route: 048
  7. LASIX [Interacting]
     Dosage: LASILIX FAIBLE
     Route: 048
  8. MINISINTROM [Concomitant]
     Dosage: 1OR 2 DAY
     Route: 048
  9. NEXIUM [Concomitant]
     Route: 048
  10. VITAMIN D [Concomitant]
     Route: 048
  11. ABILIFY [Suspect]
     Route: 048
  12. TIAPRIDAL [Interacting]
     Dosage: TABLET
     Route: 048
     Dates: start: 20111125, end: 20111207
  13. HYPERIUM [Interacting]
     Route: 048

REACTIONS (3)
  - CEPHALHAEMATOMA [None]
  - FALL [None]
  - DRUG INTERACTION [None]
